FAERS Safety Report 16131094 (Version 2)
Quarter: 2019Q2

REPORT INFORMATION
  Report Type: Report from Study
  Country: US (occurrence: US)
  Receive Date: 20190328
  Receipt Date: 20190508
  Transmission Date: 20190711
  Serious: No
  Sender: FDA-Public Use
  Company Number: PHEH2019US013298

PATIENT
  Sex: Female

DRUGS (1)
  1. GILENYA [Suspect]
     Active Substance: FINGOLIMOD HYDROCHLORIDE
     Indication: MULTIPLE SCLEROSIS
     Dosage: 0.5 MG, QD
     Route: 048
     Dates: start: 20190225

REACTIONS (6)
  - Hypoaesthesia [Not Recovered/Not Resolved]
  - Constipation [Unknown]
  - Burning sensation [Not Recovered/Not Resolved]
  - Insomnia [Not Recovered/Not Resolved]
  - Chest discomfort [Unknown]
  - Paraesthesia [Not Recovered/Not Resolved]
